FAERS Safety Report 4909927-5 (Version None)
Quarter: 2006Q1

REPORT INFORMATION
  Report Type: 
  Country: None (occurrence: None)
  Receive Date: 20060208
  Receipt Date: 20060123
  Transmission Date: 20060701
  Serious: Yes (Hospitalization, Disabling)
  Sender: FDA-Public Use
  Company Number: 2006EU000015

PATIENT
  Age: 62 Year
  Sex: Male

DRUGS (7)
  1. FK506 (TACROLIMUS) CAPSULES [Suspect]
     Indication: LIVER TRANSPLANT
     Dosage: BID, ORAL
     Route: 048
     Dates: start: 20051029
  2. MYCOPHENOLATE MOFETIL (MYCOPHENOLATE MOFETIL) [Suspect]
     Indication: LIVER TRANSPLANT
     Dosage: 1000 MG, BID, IV NOS
     Route: 042
     Dates: start: 20051029, end: 20051127
  3. ACETAMINOPHEN [Concomitant]
  4. FUROSEMIDE [Concomitant]
  5. DUOVENT (FENOTEROL HYDRBROMIDE, IPRATROPIUM BROMIDE) [Concomitant]
  6. METHYLPREDNISOLONE [Suspect]
     Indication: LIVER TRANSPLANT
     Dosage: 50 MG, QID,
     Dates: start: 20051029
  7. MYCOPHENOLATE MOFETIL (MYCOPHENOLATE MOFETIL) [Suspect]
     Dosage: 500 MG, BID, ORAL
     Route: 048
     Dates: start: 20051128

REACTIONS (5)
  - APHASIA [None]
  - COORDINATION ABNORMAL [None]
  - HEMIANOPIA [None]
  - HEMIPARESIS [None]
  - ISCHAEMIC STROKE [None]
